FAERS Safety Report 10036280 (Version 2)
Quarter: 2014Q2

REPORT INFORMATION
  Report Type: Spontaneous
  Country: IT (occurrence: IT)
  Receive Date: 20140325
  Receipt Date: 20140408
  Transmission Date: 20141212
  Serious: Yes (Other)
  Sender: FDA-Public Use
  Company Number: IT-GE HEALTHCARE MEDICAL DIAGNOSTICS-CRTC-PR-1403S-0005

PATIENT
  Age: 54 Year
  Sex: Male
  Weight: 111 kg

DRUGS (5)
  1. CERETEC [Suspect]
     Indication: PRODUCT USED FOR UNKNOWN INDICATION
     Route: 042
     Dates: start: 20140310, end: 20140310
  2. CERETEC [Suspect]
     Indication: DIAGNOSTIC PROCEDURE
  3. GELOFUSINE [Suspect]
     Route: 042
     Dates: start: 20140310, end: 20140310
  4. ANTICOAGULANT CITRATE DEXTROSE [Suspect]
     Route: 042
     Dates: start: 20140310, end: 20140310
  5. TARGIN [Concomitant]

REACTIONS (4)
  - Pruritus [Recovering/Resolving]
  - Burning sensation [Recovering/Resolving]
  - Urticaria [Recovering/Resolving]
  - Drug interaction [Recovering/Resolving]
